FAERS Safety Report 8269151-8 (Version None)
Quarter: 2012Q2

REPORT INFORMATION
  Report Type: 
  Country: None (occurrence: None)
  Receive Date: 20120409
  Receipt Date: 20120405
  Transmission Date: 20120825
  Serious: Yes (Other)
  Sender: FDA-Public Use
  Company Number: US-ENDO PHARMACEUTICALS INC.-TRIP20110137

PATIENT
  Sex: Female

DRUGS (2)
  1. NORGESTIMATE/ETHINYL ESTRADIOL [Suspect]
     Indication: CONTRACEPTION
     Dosage: 1 TABLET
     Route: 048
     Dates: start: 20110601, end: 20110701
  2. NORGESTIMATE/ETHINYL ESTRADIOL [Suspect]
     Route: 048
     Dates: start: 20110701

REACTIONS (3)
  - ABORTION INDUCED [None]
  - PREGNANCY ON ORAL CONTRACEPTIVE [None]
  - DRUG INEFFECTIVE [None]
